FAERS Safety Report 11163185 (Version 1)
Quarter: 2015Q2

REPORT INFORMATION
  Report Type: Spontaneous
  Country: IN (occurrence: IN)
  Receive Date: 20150604
  Receipt Date: 20150604
  Transmission Date: 20150821
  Serious: Yes (Death)
  Sender: FDA-Public Use
  Company Number: IN-ASTRAZENECA-2015SE54123

PATIENT
  Age: 58 Year
  Sex: Male

DRUGS (3)
  1. ANTITUBERCULAR THERAPY [Concomitant]
  2. MEROPENEM. [Suspect]
     Active Substance: MEROPENEM
     Route: 042
  3. ANTIFUNGAL DRUGS [Concomitant]
     Active Substance: UNSPECIFIED INGREDIENT

REACTIONS (1)
  - Drug resistance [Fatal]
